FAERS Safety Report 5453996-3 (Version None)
Quarter: 2007Q3

REPORT INFORMATION
  Report Type: 
  Country: None (occurrence: None)
  Receive Date: 20070917
  Receipt Date: 20070905
  Transmission Date: 20080115
  Serious: Yes (Hospitalization, Other)
  Sender: FDA-Public Use
  Company Number: HQWYE551715AUG07

PATIENT
  Sex: Male
  Weight: 137.7 kg

DRUGS (9)
  1. NEORAL [Suspect]
     Indication: PROPHYLAXIS AGAINST TRANSPLANT REJECTION
     Route: 048
     Dates: start: 20070411, end: 20070801
  2. NEORAL [Suspect]
     Route: 048
     Dates: start: 20070801
  3. IMURAN [Suspect]
     Indication: PROPHYLAXIS AGAINST TRANSPLANT REJECTION
     Route: 048
  4. ASPIRIN [Concomitant]
     Route: 048
  5. DOXAZOSIN MESYLATE [Concomitant]
     Route: 048
  6. LABETALOL HCL [Concomitant]
     Route: 048
  7. ATACAND [Concomitant]
     Route: 048
  8. PREDNISONE TAB [Suspect]
     Indication: PROPHYLAXIS AGAINST TRANSPLANT REJECTION
     Route: 048
  9. LIPITOR [Concomitant]
     Route: 048

REACTIONS (2)
  - PLEURAL EFFUSION [None]
  - PNEUMONIA [None]
